FAERS Safety Report 4438766-7 (Version None)
Quarter: 2004Q3

REPORT INFORMATION
  Report Type: 
  Country: None (occurrence: None)
  Receive Date: 20040901
  Receipt Date: 20040823
  Transmission Date: 20050211
  Serious: Yes (Hospitalization, Other)
  Sender: FDA-Public Use
  Company Number: IT-BRISTOL-MYERS SQUIBB COMPANY-12679437

PATIENT
  Age: 57 Year
  Sex: Male
  Weight: 65 kg

DRUGS (2)
  1. ATENOLOL [Suspect]
     Dosage: PATIENT INGESTED 28 100 MG ATENOLOL TABLETS
     Route: 048
  2. VERAPAMIL [Suspect]
     Dosage: PATIENT TOOK 20 80-MG VERAPAMIL TABLETS
     Route: 048

REACTIONS (3)
  - CARDIOGENIC SHOCK [None]
  - INTENTIONAL OVERDOSE [None]
  - SUICIDE ATTEMPT [None]
